FAERS Safety Report 8286675-8 (Version None)
Quarter: 2012Q2

REPORT INFORMATION
  Report Type: 
  Country: None (occurrence: None)
  Receive Date: 20120416
  Receipt Date: 20120404
  Transmission Date: 20120825
  Serious: Yes (Other)
  Sender: FDA-Public Use
  Company Number: US-JNJFOC-20120402511

PATIENT
  Sex: Female
  Weight: 68.04 kg

DRUGS (3)
  1. REMICADE [Suspect]
     Indication: CROHN'S DISEASE
     Route: 042
     Dates: end: 20120215
  2. VITAMIN B-12 [Concomitant]
     Route: 030
  3. CORTICOSTEROID [Suspect]
     Indication: PAIN
     Route: 065

REACTIONS (5)
  - MYALGIA [None]
  - DRUG SPECIFIC ANTIBODY PRESENT [None]
  - ATRIAL FIBRILLATION [None]
  - HEPATIC ENZYME INCREASED [None]
  - ARTHRITIS [None]
